FAERS Safety Report 20724947 (Version 1)
Quarter: 2022Q2

REPORT INFORMATION
  Report Type: Spontaneous
  Country: LT (occurrence: None)
  Receive Date: 20220419
  Receipt Date: 20220419
  Transmission Date: 20220720
  Serious: Yes (Other)
  Sender: FDA-Public Use
  Company Number: 2022A149700

PATIENT
  Age: 74 Year
  Sex: Male

DRUGS (1)
  1. IMFINZI [Suspect]
     Active Substance: DURVALUMAB
     Indication: Supportive care
     Dosage: EVERY TWO WEEKS
     Route: 041
     Dates: start: 20200206, end: 20201231

REACTIONS (6)
  - Oropharyngeal pain [Recovering/Resolving]
  - Asthenia [Recovering/Resolving]
  - Hypotonia [Recovering/Resolving]
  - Constipation [Recovering/Resolving]
  - Tonsillitis [Unknown]
  - Myositis [Unknown]

NARRATIVE: CASE EVENT DATE: 20200806
